FAERS Safety Report 16819616 (Version 3)
Quarter: 2019Q4

REPORT INFORMATION
  Report Type: Report from Study
  Country: US (occurrence: US)
  Receive Date: 20190917
  Receipt Date: 20191119
  Transmission Date: 20200122
  Serious: Yes (Hospitalization)
  Sender: FDA-Public Use
  Company Number: US-ACTELION-A-NJ2019-195573

PATIENT
  Age: 65 Year
  Sex: Female

DRUGS (5)
  1. DEEP SEA PREMIUM SALINE [Concomitant]
     Route: 055
  2. TORSEMIDE. [Concomitant]
     Active Substance: TORSEMIDE
  3. OPSUMIT [Suspect]
     Active Substance: MACITENTAN
     Indication: PULMONARY ARTERIAL HYPERTENSION
     Dosage: 10 MG, QD
     Route: 048
     Dates: start: 20150528
  4. BENZONATATE. [Concomitant]
     Active Substance: BENZONATATE
  5. ELIQUIS [Concomitant]
     Active Substance: APIXABAN

REACTIONS (2)
  - Pulmonary embolism [Recovered/Resolved]
  - Thrombosis [Unknown]

NARRATIVE: CASE EVENT DATE: 20190816
